FAERS Safety Report 8580510-6 (Version None)
Quarter: 2012Q3

REPORT INFORMATION
  Report Type: 
  Country: None (occurrence: None)
  Receive Date: 20120808
  Receipt Date: 20120801
  Transmission Date: 20120928
  Serious: Yes (Hospitalization, Other)
  Sender: FDA-Public Use
  Company Number: JP-VERTEX PHARMACEUTICALS INC.-AE-2012-009984

PATIENT
  Age: 61 Year
  Sex: Male

DRUGS (14)
  1. RIBAVIRIN [Concomitant]
     Route: 048
     Dates: start: 20120507, end: 20120514
  2. URINORM [Concomitant]
     Route: 048
  3. FEBURIC [Concomitant]
     Route: 048
     Dates: start: 20120424, end: 20120605
  4. RIBAVIRIN [Concomitant]
     Route: 048
     Dates: start: 20120515, end: 20120528
  5. TELAVIC [Suspect]
     Route: 048
     Dates: start: 20120620, end: 20120626
  6. TELAVIC [Suspect]
     Route: 048
     Dates: start: 20120627, end: 20120717
  7. PEGINTERFERON ALFA-2B [Concomitant]
     Indication: HEPATITIS C
     Route: 058
     Dates: start: 20120424
  8. TELAVIC [Suspect]
     Indication: HEPATITIS C
     Route: 048
     Dates: start: 20120424, end: 20120619
  9. RIBAVIRIN [Concomitant]
     Route: 048
     Dates: start: 20120606, end: 20120612
  10. URSO 250 [Concomitant]
     Route: 048
     Dates: end: 20120521
  11. RIBAVIRIN [Concomitant]
     Route: 048
     Dates: start: 20120613, end: 20120619
  12. OLMESARTAN MEDOXOMIL [Concomitant]
     Route: 048
  13. RIBAVIRIN [Concomitant]
     Indication: HEPATITIS C
     Route: 048
     Dates: start: 20120424, end: 20120506
  14. RIBAVIRIN [Concomitant]
     Route: 048
     Dates: start: 20120529, end: 20120605

REACTIONS (1)
  - PROSTATITIS [None]
